FAERS Safety Report 14753618 (Version 1)
Quarter: 2018Q2

REPORT INFORMATION
  Report Type: Report from Study
  Country: US (occurrence: US)
  Receive Date: 20180412
  Receipt Date: 20180412
  Transmission Date: 20180711
  Serious: Yes (Death, Other)
  Sender: FDA-Public Use
  Company Number: US-TEVA-2018-US-879668

PATIENT
  Age: 29 Year
  Sex: Male

DRUGS (5)
  1. CLONIDINE. [Suspect]
     Active Substance: CLONIDINE
     Route: 065
  2. CLONAZEPAM. [Suspect]
     Active Substance: CLONAZEPAM
     Route: 065
  3. CYCLOBENZAPRINE. [Suspect]
     Active Substance: CYCLOBENZAPRINE
     Route: 065
  4. TIZANIDINE. [Suspect]
     Active Substance: TIZANIDINE
     Route: 065
  5. METHOCARBAMOL. [Suspect]
     Active Substance: METHOCARBAMOL
     Route: 065

REACTIONS (4)
  - Toxicity to various agents [Fatal]
  - Depressed level of consciousness [Unknown]
  - Hypotension [Unknown]
  - Coma [Unknown]
